FAERS Safety Report 8520807 (Version 3)
Quarter: 2013Q1

REPORT INFORMATION
  Report Type: Spontaneous
  Country: US (occurrence: US)
  Receive Date: 20120419
  Receipt Date: 20130115
  Transmission Date: 20140127
  Serious: Yes (Other)
  Sender: FDA-Public Use
  Company Number: US-ASTRAZENECA-2012SE02951

PATIENT
  Age: 64 Year
  Sex: Female

DRUGS (2)
  1. NEXIUM [Suspect]
     Indication: GASTRIC DISORDER
     Route: 048
  2. NEXIUM [Suspect]
     Indication: GASTRIC DISORDER
     Route: 048

REACTIONS (7)
  - Fall [Unknown]
  - Ligament disorder [Unknown]
  - Gait disturbance [Unknown]
  - Diabetes mellitus [Unknown]
  - Multiple allergies [Unknown]
  - Off label use [Unknown]
  - Intentional drug misuse [Unknown]
